FAERS Safety Report 6316102-9 (Version None)
Quarter: 2009Q3

REPORT INFORMATION
  Report Type: 
  Country: None (occurrence: None)
  Receive Date: 20090820
  Receipt Date: 20090813
  Transmission Date: 20100115
  Serious: Yes (Other)
  Sender: FDA-Public Use
  Company Number: PHEH2009US04341

PATIENT
  Sex: Female

DRUGS (8)
  1. ENABLEX [Suspect]
     Dosage: 15 MG, UNK
  2. ENABLEX [Suspect]
     Dosage: 7.5 MG, BID
  3. ENABLEX [Suspect]
     Dosage: UNK
     Dates: start: 20081001, end: 20090101
  4. DIOVAN [Concomitant]
     Indication: BLOOD PRESSURE MANAGEMENT
     Dosage: UNK
  5. ASPIRIN [Concomitant]
     Dosage: UNK
  6. PRILOSEC [Concomitant]
  7. TRAMADOL [Concomitant]
  8. PROZAC [Concomitant]

REACTIONS (19)
  - ABDOMINAL PAIN [None]
  - BACTERIA URINE [None]
  - BACTERIAL TEST POSITIVE [None]
  - BLOOD URINE PRESENT [None]
  - CHILLS [None]
  - DECREASED APPETITE [None]
  - DRUG ADMINISTRATION ERROR [None]
  - DRUG EFFECT DECREASED [None]
  - FEELING ABNORMAL [None]
  - INFECTION [None]
  - INSOMNIA [None]
  - IRRITABLE BOWEL SYNDROME [None]
  - MALAISE [None]
  - MICTURITION DISORDER [None]
  - MUSCLE SPASMS [None]
  - NEOPLASM MALIGNANT [None]
  - PAIN [None]
  - VERTIGO [None]
  - WEIGHT DECREASED [None]
